FAERS Safety Report 25407327 (Version 1)
Quarter: 2025Q2

REPORT INFORMATION
  Report Type: Spontaneous
  Country: FR (occurrence: FR)
  Receive Date: 20250606
  Receipt Date: 20250606
  Transmission Date: 20250716
  Serious: Yes (Death)
  Sender: PFIZER
  Company Number: FR-PFIZER INC-PV202500067520

PATIENT

DRUGS (2)
  1. FOSPHENYTOIN SODIUM [Suspect]
     Active Substance: FOSPHENYTOIN SODIUM
     Dates: start: 20250601
  2. DILANTIN [Suspect]
     Active Substance: PHENYTOIN

REACTIONS (2)
  - Wrong product administered [Fatal]
  - Death [Fatal]

NARRATIVE: CASE EVENT DATE: 20250601
